FAERS Safety Report 10736807 (Version 1)
Quarter: 2015Q1

REPORT INFORMATION
  Report Type: Spontaneous
  Country: US (occurrence: None)
  Receive Date: 20150122
  Receipt Date: 20150122
  Transmission Date: 20150721
  Serious: Yes (Other)
  Sender: FDA-Public Use
  Company Number: None

PATIENT
  Age: 45 Year
  Sex: Male
  Weight: 72.58 kg

DRUGS (1)
  1. CELEXA [Suspect]
     Active Substance: CITALOPRAM HYDROBROMIDE
     Indication: DEPRESSION
     Dosage: 12-23-15 TO 12-23-15?20 MG ?1 PILL?DAILY?MOUTH?
     Route: 048

REACTIONS (7)
  - Hallucination, visual [None]
  - Feeling of body temperature change [None]
  - Vomiting [None]
  - Tremor [None]
  - Insomnia [None]
  - Chills [None]
  - Hyperhidrosis [None]

NARRATIVE: CASE EVENT DATE: 20141223
